FAERS Safety Report 4665463-5 (Version None)
Quarter: 2005Q2

REPORT INFORMATION
  Report Type: 
  Country: None (occurrence: None)
  Receive Date: 20050517
  Receipt Date: 20050505
  Transmission Date: 20051028
  Serious: Yes (Hospitalization)
  Sender: FDA-Public Use
  Company Number: 2005023160

PATIENT
  Sex: Female

DRUGS (19)
  1. ROGAINE [Suspect]
     Indication: HYPOTRICHOSIS
     Dosage: 1 ML AM + PM, TOPICAL
     Route: 061
     Dates: start: 19990101
  2. NAPROXEN SODIUM [Concomitant]
  3. METFORMIN HCL [Concomitant]
  4. GLYBURIDE [Concomitant]
  5. FUROSEMIDE [Concomitant]
  6. CENTRUM SILVER (ASCORBIC ACID, CALCIUM, MINERALS NOS, RETINOL, TOCOPHE [Concomitant]
  7. GARLIC (GARLIC) [Concomitant]
  8. CALCIUM (CALCIUM) [Concomitant]
  9. OXYGEN (OXYGEN) [Concomitant]
  10. ASPIRIN [Concomitant]
  11. FLUTICASONE PROPIONATE [Concomitant]
  12. IPRATROPIUM BROMIDE [Concomitant]
  13. SALBUTAMOL (SALBUTAMOL) [Concomitant]
  14. FLUTICASONE PROPIONATE [Concomitant]
  15. LISINOPRIL [Concomitant]
  16. LORAZEPAM [Concomitant]
  17. ETRAFON [Concomitant]
  18. ATORVASTATIN CALCIUM [Concomitant]
  19. PARACETAMOL (PARACETAMOL) [Concomitant]

REACTIONS (3)
  - HAIR GROWTH ABNORMAL [None]
  - MYOCARDIAL INFARCTION [None]
  - VENOUS OCCLUSION [None]
